FAERS Safety Report 5069452-0 (Version None)
Quarter: 2006Q3

REPORT INFORMATION
  Report Type: 
  Country: None (occurrence: None)
  Receive Date: 20060714
  Receipt Date: 20060419
  Transmission Date: 20061208
  Serious: No
  Sender: FDA-Public Use
  Company Number: 2006SP001758

PATIENT
  Age: 37 Year
  Sex: Male
  Weight: 77.1115 kg

DRUGS (5)
  1. LUNESTA [Suspect]
     Indication: INSOMNIA
     Dosage: 3 MG;ORAL
     Route: 048
     Dates: start: 20051001, end: 20051201
  2. LUNESTA [Suspect]
     Indication: INSOMNIA
     Dosage: 3 MG;ORAL
     Route: 048
     Dates: start: 20060417
  3. LISINOPRIL [Concomitant]
  4. ABACAVIR SULFATE W/ LAMIVUDINE/ZIDOVUDINE [Concomitant]
  5. KALETRA [Concomitant]

REACTIONS (1)
  - DYSGEUSIA [None]
